FAERS Safety Report 20738482 (Version 1)
Quarter: 2022Q2

REPORT INFORMATION
  Report Type: Spontaneous
  Country: US (occurrence: None)
  Receive Date: 20220421
  Receipt Date: 20220421
  Transmission Date: 20220721
  Serious: Yes (Hospitalization)
  Sender: FDA-Public Use
  Company Number: None

PATIENT
  Age: 77 Year
  Sex: Male
  Weight: 98.88 kg

DRUGS (17)
  1. TABRECTA [Suspect]
     Active Substance: CAPMATINIB
     Indication: Tracheal cancer
     Dosage: FREQUENCY : TWICE A DAY;?
     Route: 048
     Dates: start: 20220110
  2. TABRECTA [Suspect]
     Active Substance: CAPMATINIB
     Indication: Neoplasm
  3. TABRECTA [Suspect]
     Active Substance: CAPMATINIB
     Indication: Lung carcinoma cell type unspecified stage 0
  4. BUPROPION [Concomitant]
  5. DIAZEPAM [Concomitant]
  6. DOXYCYCLINE [Concomitant]
  7. ENALAPRIL [Concomitant]
  8. FOLIC ACID [Concomitant]
  9. NORCO [Concomitant]
  10. CALCIUM [Concomitant]
     Active Substance: CALCIUM
  11. LEVOTHYROXINE [Concomitant]
  12. ONDANSETRON [Concomitant]
  13. PANTOPRAZOLE [Concomitant]
  14. PREDNISONE [Concomitant]
  15. PRESERVISION [Concomitant]
  16. SENNA [Concomitant]
  17. VITAMIN D3 [Concomitant]

REACTIONS (2)
  - SARS-CoV-2 test positive [None]
  - Decreased appetite [None]

NARRATIVE: CASE EVENT DATE: 20220406
